FAERS Safety Report 18945315 (Version 5)
Quarter: 2025Q1

REPORT INFORMATION
  Report Type: Report from Study
  Country: CA (occurrence: CA)
  Receive Date: 20210226
  Receipt Date: 20250224
  Transmission Date: 20250409
  Serious: Yes (Other)
  Sender: TAKEDA
  Company Number: CA-TAKEDA-2021TUS011256

PATIENT
  Age: 63 Year
  Sex: Female

DRUGS (9)
  1. VEDOLIZUMAB [Suspect]
     Active Substance: VEDOLIZUMAB
     Indication: Colitis ulcerative
  2. VEDOLIZUMAB [Suspect]
     Active Substance: VEDOLIZUMAB
  3. VEDOLIZUMAB [Suspect]
     Active Substance: VEDOLIZUMAB
     Dosage: 300 MILLIGRAM, Q4WEEKS
     Dates: start: 20230712
  4. VEDOLIZUMAB [Suspect]
     Active Substance: VEDOLIZUMAB
     Dosage: 300 MILLIGRAM, Q4WEEKS
  5. PROLIA [Concomitant]
     Active Substance: DENOSUMAB
     Indication: Osteoporosis
  6. PENTASA [Concomitant]
     Active Substance: MESALAMINE
  7. MESALAMINE [Concomitant]
     Active Substance: MESALAMINE
  8. CALCIUM [Concomitant]
     Active Substance: CALCIUM
  9. FERROUS SULFATE [Concomitant]
     Active Substance: FERROUS SULFATE

REACTIONS (3)
  - Haematochezia [Unknown]
  - Colitis ulcerative [Unknown]
  - Off label use [Unknown]

NARRATIVE: CASE EVENT DATE: 20230712
